FAERS Safety Report 11337107 (Version 3)
Quarter: 2015Q4

REPORT INFORMATION
  Report Type: Report from Study
  Country: JP (occurrence: JP)
  Receive Date: 20150804
  Receipt Date: 20151211
  Transmission Date: 20160304
  Serious: Yes (Hospitalization, Other)
  Sender: FDA-Public Use
  Company Number: JP-EISAI MEDICAL RESEARCH-EC-2015-009178

PATIENT
  Age: 16 Year
  Sex: Male

DRUGS (13)
  1. INOVELON [Suspect]
     Active Substance: RUFINAMIDE
     Route: 048
     Dates: start: 20140427, end: 20140510
  2. INOVELON [Suspect]
     Active Substance: RUFINAMIDE
     Route: 048
     Dates: start: 20141012
  3. INOVELON [Suspect]
     Active Substance: RUFINAMIDE
     Route: 048
     Dates: start: 20140126, end: 20140329
  4. INOVELON [Suspect]
     Active Substance: RUFINAMIDE
     Route: 048
     Dates: start: 20140608, end: 20140913
  5. INOVELON [Suspect]
     Active Substance: RUFINAMIDE
     Route: 048
     Dates: start: 20140112, end: 20140125
  6. LAMICTAL [Concomitant]
     Active Substance: LAMOTRIGINE
  7. VALERIN [Concomitant]
     Active Substance: VALPROATE SODIUM
  8. INOVELON [Suspect]
     Active Substance: RUFINAMIDE
     Route: 048
     Dates: start: 20140914, end: 20141011
  9. EXCEGRAN [Concomitant]
     Active Substance: ZONISAMIDE
  10. INOVELON [Suspect]
     Active Substance: RUFINAMIDE
     Indication: LENNOX-GASTAUT SYNDROME
     Route: 048
     Dates: start: 20140104, end: 20140111
  11. INOVELON [Suspect]
     Active Substance: RUFINAMIDE
     Route: 048
     Dates: start: 20140330, end: 20140412
  12. INOVELON [Suspect]
     Active Substance: RUFINAMIDE
     Route: 048
     Dates: start: 20140413, end: 20140426
  13. INOVELON [Suspect]
     Active Substance: RUFINAMIDE
     Route: 048
     Dates: start: 20140511, end: 20140607

REACTIONS (2)
  - Status epilepticus [Recovering/Resolving]
  - Fracture [Recovered/Resolved]

NARRATIVE: CASE EVENT DATE: 20140128
